FAERS Safety Report 17077203 (Version 2)
Quarter: 2020Q1

REPORT INFORMATION
  Report Type: Spontaneous
  Country: US (occurrence: US)
  Receive Date: 20191126
  Receipt Date: 20200117
  Transmission Date: 20200409
  Serious: Yes (Death, Other)
  Sender: FDA-Public Use
  Company Number: US-GLAXOSMITHKLINE-US2019AMR211976

PATIENT
  Sex: Male
  Weight: 106.12 kg

DRUGS (1)
  1. INCRUSE ELLIPTA [Suspect]
     Active Substance: UMECLIDINIUM BROMIDE
     Indication: CHRONIC OBSTRUCTIVE PULMONARY DISEASE
     Dosage: UNK
     Route: 055
     Dates: start: 2017

REACTIONS (1)
  - Death [Fatal]
